FAERS Safety Report 7532201-8 (Version None)
Quarter: 2011Q2

REPORT INFORMATION
  Report Type: 
  Country: None (occurrence: None)
  Receive Date: 20110608
  Receipt Date: 20110525
  Transmission Date: 20111010
  Serious: Yes (Other)
  Sender: FDA-Public Use
  Company Number: US-JNJFOC-20110511649

PATIENT
  Sex: Male
  Weight: 121.56 kg

DRUGS (8)
  1. LASIX [Concomitant]
     Indication: RENAL DISORDER
     Route: 048
  2. FOLIC ACID [Concomitant]
     Route: 048
     Dates: start: 20040101
  3. ALLOPURINOL [Concomitant]
     Indication: RENAL DISORDER
     Route: 048
     Dates: start: 20040101
  4. PROSCAR [Concomitant]
     Indication: PROSTATIC DISORDER
     Route: 048
     Dates: start: 20040101
  5. REMICADE [Suspect]
     Indication: CROHN'S DISEASE
     Route: 042
     Dates: start: 20060101
  6. ENTOCORT EC [Concomitant]
     Indication: CROHN'S DISEASE
     Route: 048
     Dates: start: 20040101
  7. POTASSIUM CHLORIDE [Concomitant]
     Route: 048
  8. PRENATAL  VITAMINS [Concomitant]
     Route: 048
     Dates: start: 20040101

REACTIONS (10)
  - GLAUCOMA [None]
  - VITAMIN D DEFICIENCY [None]
  - POLYP [None]
  - DIARRHOEA [None]
  - FATIGUE [None]
  - CATARACT [None]
  - WEIGHT DECREASED [None]
  - HYPERTENSION [None]
  - LETHARGY [None]
  - DIVERTICULUM [None]
